FAERS Safety Report 17509717 (Version 1)
Quarter: 2020Q1

REPORT INFORMATION
  Report Type: Spontaneous
  Country: US (occurrence: US)
  Receive Date: 20200225
  Receipt Date: 20200225
  Transmission Date: 20200409
  Serious: Yes (Hospitalization)
  Sender: FDA-Public Use
  Company Number: None

PATIENT
  Age: 61 Year
  Sex: Male

DRUGS (2)
  1. INSULIN (INSULIN, GLARGINE, HUMAN 100UNT/ML INJ) [Suspect]
     Active Substance: INSULIN GLARGINE
     Indication: DIABETES MELLITUS
     Dosage: ?          OTHER STRENGTH:100 UNT/ML;OTHER DOSE:55 UNITS;?
     Route: 058
     Dates: start: 20150331, end: 20200213
  2. INSULIN (INSULIN, REGULAR, HUMAN 100 UNT/ML INJ) [Suspect]
     Active Substance: INSULIN HUMAN
     Indication: DIABETES MELLITUS
     Dosage: ?          OTHER STRENGTH:100 UNT/ML;OTHER DOSE:35 UNITS;?
     Route: 058
     Dates: start: 20190618, end: 20200213

REACTIONS (5)
  - Peripheral ischaemia [None]
  - Abscess limb [None]
  - Toe amputation [None]
  - Acute kidney injury [None]
  - Diabetic foot [None]

NARRATIVE: CASE EVENT DATE: 20200130
